FAERS Safety Report 15274739 (Version 1)
Quarter: 2018Q3

REPORT INFORMATION
  Report Type: Report from Study
  Country: DE (occurrence: DE)
  Receive Date: 20180814
  Receipt Date: 20180814
  Transmission Date: 20181010
  Serious: Yes (Other)
  Sender: FDA-Public Use
  Company Number: DE-TEVA-2018-DE-939615

PATIENT
  Age: 48 Year
  Sex: Female

DRUGS (5)
  1. ROACTEMRA [Suspect]
     Active Substance: TOCILIZUMAB
     Indication: POLYARTHRITIS
     Dosage: DOSAGE ACCORDING TO BODY WEIGHT
     Route: 042
     Dates: start: 20141118
  2. PARACETAMOL [Concomitant]
     Active Substance: ACETAMINOPHEN
     Dosage: INFREQUENT
     Route: 065
  3. OXAZEPAM. [Concomitant]
     Active Substance: OXAZEPAM
     Route: 065
  4. METHOTREXAT [Suspect]
     Active Substance: METHOTREXATE
     Indication: POLYARTHRITIS
     Route: 065
  5. TRAUMAL [Concomitant]
     Dosage: INFREQUENT
     Route: 065

REACTIONS (14)
  - Stomatitis [Not Recovered/Not Resolved]
  - Hypertension [Unknown]
  - Drug effect decreased [Not Recovered/Not Resolved]
  - Nausea [Unknown]
  - Joint swelling [Not Recovered/Not Resolved]
  - Insulin resistance [Unknown]
  - Aphthous ulcer [Not Recovered/Not Resolved]
  - Breast enlargement [Not Recovered/Not Resolved]
  - Weight increased [Recovered/Resolved]
  - Metabolic disorder [Unknown]
  - Breast tenderness [Not Recovered/Not Resolved]
  - Pharyngitis [Unknown]
  - Thyroid mass [Unknown]
  - Headache [Unknown]

NARRATIVE: CASE EVENT DATE: 20150402
